FAERS Safety Report 8932218 (Version 1)
Quarter: 2012Q4

REPORT INFORMATION
  Report Type: 
  Country: DE (occurrence: DE)
  Receive Date: 20121128
  Receipt Date: 20121128
  Transmission Date: 20130627
  Serious: Yes (Life-Threatening, Hospitalization)
  Sender: FDA-Public Use
  Company Number: DE-BAYER-2012-122905

PATIENT
  Age: 68 Year
  Sex: Female

DRUGS (1)
  1. GADOVIST [Suspect]
     Indication: NMR
     Dosage: 7 ml, UNK
     Route: 042
     Dates: start: 20120629, end: 20120629

REACTIONS (2)
  - Resuscitation [None]
  - Anaphylactic shock [None]
